FAERS Safety Report 4467756-3 (Version None)
Quarter: 2004Q4

REPORT INFORMATION
  Report Type: 
  Country: None (occurrence: None)
  Receive Date: 20041001
  Receipt Date: 20040924
  Transmission Date: 20050328
  Serious: Yes (Death, Hospitalization, Other)
  Sender: FDA-Public Use
  Company Number: STA-AE-04-MTX-367

PATIENT
  Age: 68 Year
  Sex: Female

DRUGS (8)
  1. RHEUMATREX [Suspect]
     Indication: RHEUMATOID ARTHRITIS
     Dosage: 6 MG 1X PER 1 DAY, ORAL
     Route: 048
     Dates: start: 20040407, end: 20040616
  2. RHEUMATREX [Suspect]
     Dosage: 12 1X PER 2 DAY, ORAL
     Route: 048
     Dates: start: 20040728, end: 20040730
  3. RHEUMATREX [Suspect]
     Dosage: 2 M 1X PER 1 WK, ORAL
     Route: 048
     Dates: start: 20040804, end: 20040804
  4. FLUTICASONE PROPIONATE [Concomitant]
  5. INDACIN (INDOMETACIN) [Concomitant]
  6. LEVOTHYROXINE SODIUM [Concomitant]
  7. PARIET (RABEPRAZOLE) [Concomitant]
  8. PREDNISOLONE [Concomitant]

REACTIONS (15)
  - ACCIDENTAL OVERDOSE [None]
  - ANAEMIA [None]
  - ANOREXIA [None]
  - BONE MARROW DEPRESSION [None]
  - CARDIAC FAILURE [None]
  - CONDITION AGGRAVATED [None]
  - DEHYDRATION [None]
  - DISSEMINATED INTRAVASCULAR COAGULATION [None]
  - HAEMORRHAGE [None]
  - INFECTION [None]
  - MEDICATION ERROR [None]
  - NAUSEA [None]
  - RENAL FAILURE ACUTE [None]
  - RESPIRATORY FAILURE [None]
  - RHEUMATOID ARTHRITIS [None]
